FAERS Safety Report 4269004-6 (Version None)
Quarter: 2004Q1

REPORT INFORMATION
  Report Type: 
  Country: None (occurrence: None)
  Receive Date: 20040108
  Receipt Date: 20031229
  Transmission Date: 20041129
  Serious: Yes (Death)
  Sender: FDA-Public Use
  Company Number: 2002-07-0222

PATIENT
  Age: 58 Year
  Sex: Male

DRUGS (3)
  1. THALOMID [Suspect]
     Indication: MEDULLARY THYROID CANCER
     Dosage: 200 MG, QHS, ORAL
     Route: 048
     Dates: start: 20020515, end: 20020711
  2. THALOMID [Suspect]
     Indication: NERVOUS SYSTEM NEOPLASM
     Dosage: 200 MG, QHS, ORAL
     Route: 048
     Dates: start: 20020515, end: 20020711
  3. DEXAMETHASONE [Suspect]
     Indication: METASTASES TO CENTRAL NERVOUS SYSTEM
     Dates: start: 20020101, end: 20020101

REACTIONS (5)
  - CONDITION AGGRAVATED [None]
  - DIVERTICULUM [None]
  - LARGE INTESTINE PERFORATION [None]
  - METASTASES TO CENTRAL NERVOUS SYSTEM [None]
  - PERITONITIS [None]
